FAERS Safety Report 5711936-3 (Version None)
Quarter: 2008Q2

REPORT INFORMATION
  Report Type: 
  Country: None (occurrence: None)
  Receive Date: 20080421
  Receipt Date: 20080409
  Transmission Date: 20081010
  Serious: Yes (Hospitalization)
  Sender: FDA-Public Use
  Company Number: BE-ELI_LILLY_AND_COMPANY-BE200804002985

PATIENT
  Age: 72 Year
  Sex: Male

DRUGS (5)
  1. CYMBALTA [Suspect]
     Indication: DEPRESSION
     Dosage: 60 MG, DAILY (1/D)
     Route: 048
     Dates: start: 20080208, end: 20080226
  2. TAMSULOSIN HCL [Concomitant]
     Dosage: 0.4 MG, UNK
  3. ZOLPIDEM TARTRATE [Concomitant]
  4. GLURENORM [Concomitant]
     Indication: DIABETES MELLITUS
  5. BROMAZEPAM [Concomitant]
     Dosage: 6 MG, UNK

REACTIONS (3)
  - CONFUSIONAL STATE [None]
  - DELIRIUM [None]
  - HALLUCINATION [None]
